FAERS Safety Report 12432843 (Version 1)
Quarter: 2016Q2

REPORT INFORMATION
  Report Type: Spontaneous
  Country: JP (occurrence: JP)
  Receive Date: 20160603
  Receipt Date: 20160603
  Transmission Date: 20160815
  Serious: Yes (Other)
  Sender: FDA-Public Use
  Company Number: JP-SUNOVION-2016SUN001361

PATIENT
  Age: 87 Year
  Sex: Male

DRUGS (4)
  1. LUNESTA [Suspect]
     Active Substance: ESZOPICLONE
     Dosage: 1 MG, QD
     Route: 048
     Dates: start: 20160426, end: 20160509
  2. LULLAN [Concomitant]
     Active Substance: PEROSPIRONE HYDROCHLORIDE
     Indication: DELIRIUM
     Route: 048
     Dates: start: 20160426
  3. SYMMETREL [Concomitant]
     Active Substance: AMANTADINE HYDROCHLORIDE
     Dosage: UNK
     Route: 048
  4. LULLAN [Concomitant]
     Active Substance: PEROSPIRONE HYDROCHLORIDE
     Dosage: 8 MG, QD
     Route: 048
     Dates: start: 20160509

REACTIONS (1)
  - Delirium [Recovered/Resolved]

NARRATIVE: CASE EVENT DATE: 20160507
